FAERS Safety Report 12568579 (Version 1)
Quarter: 2016Q3

REPORT INFORMATION
  Report Type: Spontaneous
  Country: GB (occurrence: GB)
  Receive Date: 20160719
  Receipt Date: 20160719
  Transmission Date: 20161109
  Serious: Yes (Other)
  Sender: FDA-Public Use
  Company Number: GB-ROCHE-1667511

PATIENT
  Sex: Female

DRUGS (1)
  1. HERCEPTIN [Suspect]
     Active Substance: TRASTUZUMAB
     Indication: PRODUCT USED FOR UNKNOWN INDICATION
     Dosage: CYCLE 8 OF 18
     Route: 058

REACTIONS (20)
  - Myalgia [Not Recovered/Not Resolved]
  - Oral pain [Recovered/Resolved]
  - Arthralgia [Not Recovered/Not Resolved]
  - Hypokinesia [Unknown]
  - Insomnia [Unknown]
  - Sleep disorder [Unknown]
  - Dizziness [Unknown]
  - Axillary pain [Unknown]
  - Gingival pain [Recovered/Resolved]
  - Peripheral swelling [Unknown]
  - Nausea [Unknown]
  - Mouth ulceration [Unknown]
  - Breast cancer [Unknown]
  - Malaise [Unknown]
  - Onychoclasis [Unknown]
  - Pruritus [Unknown]
  - Pain [Unknown]
  - Breast pain [Unknown]
  - Pain in extremity [Unknown]
  - Dry skin [Unknown]
